FAERS Safety Report 8061934-2 (Version None)
Quarter: 2012Q1

REPORT INFORMATION
  Report Type: 
  Country: None (occurrence: None)
  Receive Date: 20120123
  Receipt Date: 20111012
  Transmission Date: 20120608
  Serious: Yes (Other)
  Sender: FDA-Public Use
  Company Number: CA-JNJFOC-20120106494

PATIENT
  Sex: Female
  Weight: 59 kg

DRUGS (1)
  1. REMICADE [Suspect]
     Indication: CROHN'S DISEASE
     Route: 042
     Dates: start: 20110315

REACTIONS (5)
  - NAUSEA [None]
  - PAIN [None]
  - SCAR [None]
  - ABDOMINAL PAIN [None]
  - CHANGE OF BOWEL HABIT [None]
